FAERS Safety Report 16167340 (Version 2)
Quarter: 2019Q2

REPORT INFORMATION
  Report Type: Report from Study
  Country: None (occurrence: FR)
  Receive Date: 20190408
  Receipt Date: 20190618
  Transmission Date: 20190711
  Serious: Yes (Life-Threatening, Hospitalization)
  Sender: FDA-Public Use
  Company Number: FR-ABBVIE-19P-056-2733748-00

PATIENT
  Age: 64 Year
  Sex: Male

DRUGS (3)
  1. DOCETAXEL. [Suspect]
     Active Substance: DOCETAXEL
     Indication: PRODUCT USED FOR UNKNOWN INDICATION
     Dosage: 150 MILLIGRAM
     Route: 042
     Dates: start: 20151109, end: 20151109
  2. LEUPRORELIN [Suspect]
     Active Substance: LEUPROLIDE ACETATE
     Indication: PRODUCT USED FOR UNKNOWN INDICATION
     Dosage: 11.25 MILLIGRAM
     Route: 065
     Dates: start: 20151107, end: 20151107
  3. DOCETAXEL. [Suspect]
     Active Substance: DOCETAXEL
     Dosage: 150 MILLIGRAM
     Route: 042
     Dates: start: 20151203, end: 20151203

REACTIONS (1)
  - Neutropenia [Recovered/Resolved]

NARRATIVE: CASE EVENT DATE: 20151210
